FAERS Safety Report 6108897-4 (Version None)
Quarter: 2009Q1

REPORT INFORMATION
  Report Type: 
  Country: None (occurrence: None)
  Receive Date: 20090306
  Receipt Date: 20090303
  Transmission Date: 20090719
  Serious: Yes (Hospitalization)
  Sender: FDA-Public Use
  Company Number: GXKR2009DE02520

PATIENT
  Age: 40 Year
  Sex: Male
  Weight: 88 kg

DRUGS (4)
  1. CARBOPLATIN [Suspect]
     Indication: SEMINOMA
     Dosage: 630 MG DAILY
     Dates: start: 20090217
  2. DEXAMETHASONE [Suspect]
     Dosage: 8 MG DAILY, INTRAVENOUS
     Route: 042
     Dates: start: 20090217
  3. LAMOTRIGINE [Suspect]
     Indication: CONVULSION
     Dosage: 100 MG, BID
  4. ONDANSETRON [Suspect]
     Dosage: 8 MG DAILY, INTRAVENOUS
     Route: 042

REACTIONS (2)
  - CONVULSION [None]
  - DRUG INTERACTION [None]
